FAERS Safety Report 4588250-5 (Version None)
Quarter: 2005Q1

REPORT INFORMATION
  Report Type: 
  Country: None (occurrence: None)
  Receive Date: 20050221
  Receipt Date: 20050127
  Transmission Date: 20050727
  Serious: Yes (Hospitalization, Other)
  Sender: FDA-Public Use
  Company Number: CA-ABBOTT-05P-028-0289106-00

PATIENT
  Sex: Female
  Weight: 74.91 kg

DRUGS (9)
  1. MAVIK [Suspect]
     Indication: HYPERTENSION
     Route: 048
     Dates: start: 20041028
  2. GLICLAZIDE [Concomitant]
     Indication: DIABETES MELLITUS
     Route: 048
     Dates: start: 20040413
  3. ROSIGLITAZONE MALEATE [Concomitant]
     Indication: DIABETES MELLITUS
     Route: 048
     Dates: start: 20020101
  4. METFORMIN HCL [Concomitant]
     Indication: DIABETES MELLITUS
     Route: 048
     Dates: start: 20041020
  5. FUROSEMIDE [Concomitant]
     Indication: CARDIAC FAILURE
     Dates: start: 20041204
  6. LORAZEPAM [Concomitant]
     Indication: INSOMNIA
     Dates: start: 20041204
  7. DILTIAZEM HYDROCHLORIDE [Concomitant]
     Indication: SUPRAVENTRICULAR TACHYCARDIA
     Dates: start: 20041204
  8. COMBIVENT [Concomitant]
     Indication: CHRONIC OBSTRUCTIVE PULMONARY DISEASE
     Dates: start: 20041204
  9. FLUTICASONE PROPIONATE [Concomitant]
     Indication: CHRONIC OBSTRUCTIVE PULMONARY DISEASE
     Dates: start: 20041204

REACTIONS (4)
  - CARDIAC FAILURE [None]
  - DYSPNOEA [None]
  - SUPERINFECTION LUNG [None]
  - SUPRAVENTRICULAR TACHYCARDIA [None]
